FAERS Safety Report 20006826 (Version 6)
Quarter: 2023Q4

REPORT INFORMATION
  Report Type: Spontaneous
  Country: US (occurrence: US)
  Receive Date: 20211028
  Receipt Date: 20231222
  Transmission Date: 20240109
  Serious: Yes (Hospitalization, Other)
  Sender: FDA-Public Use
  Company Number: US-GLAXOSMITHKLINE-US2021215268

PATIENT

DRUGS (3)
  1. NUCALA [Suspect]
     Active Substance: MEPOLIZUMAB
     Indication: Asthma
     Dosage: 100 MG/ML
     Route: 058
     Dates: start: 20211015
  2. NUCALA [Suspect]
     Active Substance: MEPOLIZUMAB
  3. NUCALA [Suspect]
     Active Substance: MEPOLIZUMAB
     Indication: Asthma
     Dosage: UNK

REACTIONS (16)
  - Renal impairment [Not Recovered/Not Resolved]
  - Urinary retention [Unknown]
  - Neurogenic bladder [Unknown]
  - Brain fog [Unknown]
  - Constipation [Not Recovered/Not Resolved]
  - Renal failure [Unknown]
  - Choking [Unknown]
  - Dyspnoea [Unknown]
  - Speech disorder [Unknown]
  - Cough [Unknown]
  - Limb discomfort [Unknown]
  - Illness [Unknown]
  - Feeling abnormal [Unknown]
  - Dyspnoea [Unknown]
  - Drug ineffective [Unknown]
  - Product dose omission issue [Unknown]

NARRATIVE: CASE EVENT DATE: 20211015
